FAERS Safety Report 5586797-6 (Version None)
Quarter: 2008Q1

REPORT INFORMATION
  Report Type: 
  Country: None (occurrence: None)
  Receive Date: 20080110
  Receipt Date: 20080103
  Transmission Date: 20080703
  Serious: Yes (Hospitalization)
  Sender: FDA-Public Use
  Company Number: JP-BRACCO-000055

PATIENT
  Age: 73 Year
  Sex: Male

DRUGS (4)
  1. IOPAMIDOL [Suspect]
     Indication: COMPUTERISED TOMOGRAM
     Route: 042
     Dates: start: 20071226, end: 20071226
  2. IOPAMIDOL [Suspect]
     Indication: LIVER DISORDER
     Route: 042
     Dates: start: 20071226, end: 20071226
  3. PLATELETS [Concomitant]
     Dosage: PLATELET TRANSFUSION
     Route: 042
     Dates: start: 20071226
  4. CORTICOSTEROID NOS [Concomitant]
     Dosage: UNSPECIFIED STEROID
     Route: 065
     Dates: start: 20071226

REACTIONS (1)
  - PLATELET COUNT DECREASED [None]
